FAERS Safety Report 10180171 (Version 2)
Quarter: 2014Q2

REPORT INFORMATION
  Report Type: Spontaneous
  Country: US (occurrence: US)
  Receive Date: 20140519
  Receipt Date: 20140519
  Transmission Date: 20141212
  Serious: No
  Sender: FDA-Public Use
  Company Number: US-AMGEN INC.-USASP2013074836

PATIENT
  Age: 60 Year
  Sex: Female
  Weight: 66.21 kg

DRUGS (4)
  1. PROLIA [Suspect]
     Indication: OSTEOPOROSIS POSTMENOPAUSAL
     Dosage: 60 MG, Q6MO
     Route: 065
     Dates: start: 20121018
  2. PROLIA [Suspect]
     Dosage: UNK
     Route: 065
  3. PROLIA [Suspect]
     Dosage: UNK
     Route: 065
  4. ASADOL [Concomitant]
     Dosage: 40 MG, QD
     Route: 048

REACTIONS (1)
  - Anxiety [Unknown]
